FAERS Safety Report 26062535 (Version 1)
Quarter: 2025Q4

REPORT INFORMATION
  Report Type: Report from Study
  Country: US (occurrence: US)
  Receive Date: 20251119
  Receipt Date: 20251119
  Transmission Date: 20260118
  Serious: Yes (Other)
  Sender: ROCHE
  Company Number: US-ROCHE-10000435538

PATIENT

DRUGS (1)
  1. RITUXAN [Suspect]
     Active Substance: RITUXIMAB
     Indication: Lupus nephritis
     Route: 065

REACTIONS (4)
  - Off label use [Unknown]
  - Hypergammaglobulinaemia [Unknown]
  - Hypogammaglobulinaemia [Unknown]
  - Infection susceptibility increased [Unknown]
